FAERS Safety Report 6748025 (Version 4)
Quarter: 2015Q2

REPORT INFORMATION
  Report Type: Spontaneous
  Country: FR (occurrence: FR)
  Receive Date: 20080904
  Receipt Date: 20150617
  Transmission Date: 20150821
  Serious: Yes (Hospitalization)
  Sender: FDA-Public Use
  Company Number: FR-ELI_LILLY_AND_COMPANY-FR200808004253

PATIENT
  Age: 63 Year
  Sex: Female
  Weight: 68 kg

DRUGS (10)
  1. CYMBALTA [Suspect]
     Active Substance: DULOXETINE HYDROCHLORIDE
     Indication: DEPRESSION
     Dosage: 60 MG, DAILY (1/D)
     Route: 048
     Dates: start: 20080715, end: 20080719
  2. DIAMICRON [Concomitant]
     Active Substance: GLICLAZIDE
     Indication: DIABETES MELLITUS
     Dosage: 30, 4/D
     Route: 048
     Dates: start: 2006, end: 20080719
  3. KARDEGIC [Concomitant]
     Active Substance: ASPIRIN LYSINE
     Dosage: 75, UNKNOWN
     Route: 048
     Dates: start: 2007, end: 20080719
  4. TENOLOL [Concomitant]
     Dosage: UNK, UNKNOWN
     Route: 065
  5. AVANDIA [Concomitant]
     Active Substance: ROSIGLITAZONE MALEATE
     Indication: DIABETES MELLITUS
     Dosage: 8, DAILY (1/D)
     Route: 048
     Dates: start: 2006, end: 20080719
  6. FUROSEMIDE. [Concomitant]
     Active Substance: FUROSEMIDE
     Dosage: UNK, UNKNOWN
     Route: 065
  7. ATENOLOL. [Concomitant]
     Active Substance: ATENOLOL
     Indication: HYPERTENSION
     Dosage: 100, DAILY (1/D)
     Route: 048
     Dates: start: 2006, end: 20080719
  8. INEGY [Concomitant]
     Active Substance: EZETIMIBE\SIMVASTATIN
     Indication: HYPERCHOLESTEROLAEMIA
     Dosage: 10/40, DAILY (1/D)
     Route: 048
     Dates: start: 2007, end: 20080719
  9. COAPROVEL [Concomitant]
     Active Substance: HYDROCHLOROTHIAZIDE\IRBESARTAN
     Indication: HYPERTENSION
     Dosage: 300/25
     Route: 048
     Dates: start: 2006, end: 20080719
  10. EVISTA [Concomitant]
     Active Substance: RALOXIFENE HYDROCHLORIDE
     Indication: OSTEOPOROSIS
     Dosage: 60, DAILY (1/D)
     Route: 048
     Dates: start: 2006, end: 20080719

REACTIONS (6)
  - Hypotension [Recovered/Resolved]
  - Duodenal ulcer [Recovered/Resolved]
  - Melaena [Recovered/Resolved]
  - Anaemia [Recovered/Resolved]
  - Glycosylated haemoglobin increased [Recovered/Resolved]
  - Gastric ulcer [Recovered/Resolved]

NARRATIVE: CASE EVENT DATE: 20080719
